FAERS Safety Report 24747904 (Version 1)
Quarter: 2024Q4

REPORT INFORMATION
  Report Type: Report from Study
  Country: US (occurrence: US)
  Receive Date: 20241218
  Receipt Date: 20241218
  Transmission Date: 20250115
  Serious: Yes (Life-Threatening, Hospitalization, Disabling, Other)
  Sender: ALEXION PHARMACEUTICALS
  Company Number: US-AstraZeneca-CH-00768017A

PATIENT

DRUGS (8)
  1. BUDESONIDE\FORMOTEROL [Suspect]
     Active Substance: BUDESONIDE\FORMOTEROL
     Indication: Chronic obstructive pulmonary disease
     Dosage: 80 MICROGRAM
     Route: 065
  2. BUDESONIDE\FORMOTEROL [Suspect]
     Active Substance: BUDESONIDE\FORMOTEROL
     Dosage: 80 MICROGRAM
     Route: 065
  3. BUDESONIDE\FORMOTEROL [Suspect]
     Active Substance: BUDESONIDE\FORMOTEROL
     Dosage: 80 MICROGRAM
     Route: 065
  4. BUDESONIDE\FORMOTEROL [Suspect]
     Active Substance: BUDESONIDE\FORMOTEROL
     Dosage: 80 MICROGRAM
     Route: 065
  5. BUDESONIDE\FORMOTEROL [Suspect]
     Active Substance: BUDESONIDE\FORMOTEROL
     Indication: Chronic obstructive pulmonary disease
     Dosage: 160 MICROGRAM
     Route: 065
  6. BUDESONIDE\FORMOTEROL [Suspect]
     Active Substance: BUDESONIDE\FORMOTEROL
     Dosage: 160 MICROGRAM
     Route: 065
  7. BUDESONIDE\FORMOTEROL [Suspect]
     Active Substance: BUDESONIDE\FORMOTEROL
     Dosage: 160 MICROGRAM
     Route: 065
  8. BUDESONIDE\FORMOTEROL [Suspect]
     Active Substance: BUDESONIDE\FORMOTEROL
     Dosage: 160 MICROGRAM
     Route: 065

REACTIONS (16)
  - Cardiac failure congestive [Unknown]
  - Dyspnoea [Unknown]
  - Sternal fracture [Unknown]
  - Cardiac arrest [Unknown]
  - Coma [Unknown]
  - Transient ischaemic attack [Unknown]
  - Ulcer haemorrhage [Unknown]
  - Pulmonary mass [Unknown]
  - Renal failure [Unknown]
  - Glaucoma [Unknown]
  - Blindness unilateral [Unknown]
  - Intellectual disability [Unknown]
  - Emotional disorder [Unknown]
  - Therapeutic product effect incomplete [Unknown]
  - Spinal stenosis [Unknown]
  - Peripheral venous disease [Unknown]
